FAERS Safety Report 4640682-2 (Version None)
Quarter: 2005Q2

REPORT INFORMATION
  Report Type: 
  Country: None (occurrence: None)
  Receive Date: 20050419
  Receipt Date: 20050406
  Transmission Date: 20051028
  Serious: Yes (Life-Threatening)
  Sender: FDA-Public Use
  Company Number: 2005056423

PATIENT
  Sex: Male

DRUGS (1)
  1. ESTRACYT (ESTRAMUSTINE PHOSPHATE SODIUM) [Suspect]
     Indication: PROSTATE CANCER METASTATIC
     Dosage: INTRAVENOUS
     Route: 042
     Dates: start: 20050101, end: 20050401

REACTIONS (2)
  - BLOOD CREATININE INCREASED [None]
  - RENAL IMPAIRMENT [None]
